FAERS Safety Report 5257236-X (Version None)
Quarter: 2007Q1

REPORT INFORMATION
  Report Type: 
  Country: None (occurrence: None)
  Receive Date: 20070307
  Receipt Date: 20070301
  Transmission Date: 20070707
  Serious: Yes (Hospitalization)
  Sender: FDA-Public Use
  Company Number: DK-JNJFOC-20070300648

PATIENT
  Age: 57 Year
  Sex: Male
  Weight: 102 kg

DRUGS (3)
  1. REMICADE [Suspect]
     Dosage: 8TH INFUSION
     Route: 042
  2. REMICADE [Suspect]
     Dosage: 7TH INFUSION
     Route: 042
  3. REMICADE [Suspect]
     Indication: PSORIASIS
     Dosage: 6 INFUSIONS
     Route: 042

REACTIONS (2)
  - PERICARDITIS [None]
  - PNEUMONIA [None]
